FAERS Safety Report 14595422 (Version 1)
Quarter: 2018Q1

REPORT INFORMATION
  Report Type: Spontaneous
  Country: IT (occurrence: IT)
  Receive Date: 20180302
  Receipt Date: 20180302
  Transmission Date: 20180509
  Serious: Yes (Hospitalization, Other)
  Sender: FDA-Public Use
  Company Number: IT-TEVA-2018-IT-862674

PATIENT
  Age: 58 Year
  Sex: Female

DRUGS (2)
  1. FENTANYL. [Suspect]
     Active Substance: FENTANYL
     Indication: CANCER PAIN
     Route: 048
  2. FENTANYL. [Suspect]
     Active Substance: FENTANYL
     Indication: BREAKTHROUGH PAIN

REACTIONS (7)
  - Nausea [Unknown]
  - Haemorrhage [Unknown]
  - Ulcer [Unknown]
  - Pain [Unknown]
  - Vomiting [Unknown]
  - Swelling [Unknown]
  - Somnolence [Unknown]
